FAERS Safety Report 24167860 (Version 1)
Quarter: 2024Q3

REPORT INFORMATION
  Report Type: Report from Study
  Country: US (occurrence: None)
  Receive Date: 20240802
  Receipt Date: 20240802
  Transmission Date: 20241016
  Serious: Yes (Hospitalization)
  Sender: ASTRAZENECA
  Company Number: 2024A170327

PATIENT
  Sex: Female

DRUGS (1)
  1. CALQUENCE [Suspect]
     Active Substance: ACALABRUTINIB
     Indication: Chronic lymphocytic leukaemia
     Route: 048
     Dates: start: 20240517

REACTIONS (6)
  - Dizziness [Unknown]
  - Myocardial necrosis marker increased [Unknown]
  - Weight decreased [Unknown]
  - Taste disorder [Unknown]
  - Hypertension [Unknown]
  - Arthralgia [Unknown]
